FAERS Safety Report 4456343-9 (Version None)
Quarter: 2004Q3

REPORT INFORMATION
  Report Type: 
  Country: None (occurrence: None)
  Receive Date: 20040917
  Receipt Date: 20040909
  Transmission Date: 20050211
  Serious: Yes (Hospitalization)
  Sender: FDA-Public Use
  Company Number: 2004-09-0585

PATIENT
  Age: 44 Year
  Sex: Female

DRUGS (13)
  1. PEG-INTRON [Suspect]
     Indication: HEPATITIS C
     Dosage: 120 MCG SUBCUTANEOUS
     Route: 058
     Dates: start: 20040227, end: 20040607
  2. REBETOL [Suspect]
     Indication: HEPATITIS C
     Dosage: ORAL
     Route: 048
     Dates: start: 20040227, end: 20040607
  3. ACIPHEX [Concomitant]
  4. CALCIUM/MAGNESIUM/ZINC TABLETS [Concomitant]
  5. FLONASE NAIL SOLUTION [Concomitant]
  6. IRON CAPSULES [Concomitant]
  7. OYSTER CALCIUM TABLETS [Concomitant]
  8. PROZAC [Concomitant]
  9. SEROQUEL [Concomitant]
  10. VITAMIN B COMPLEX TABLETS [Concomitant]
  11. VITAMIN B6 TABLETS [Concomitant]
  12. VITAMIN E CAPSULES [Concomitant]
  13. EFFEXOR [Concomitant]

REACTIONS (6)
  - CONTUSION [None]
  - DYSPHAGIA [None]
  - OESOPHAGEAL DISORDER [None]
  - PHARMACEUTICAL PRODUCT COMPLAINT [None]
  - PHARYNGOLARYNGEAL PAIN [None]
  - SWELLING [None]
